FAERS Safety Report 22185267 (Version 1)
Quarter: 2023Q2

REPORT INFORMATION
  Report Type: Spontaneous
  Country: FR (occurrence: None)
  Receive Date: 20230407
  Receipt Date: 20230407
  Transmission Date: 20230721
  Serious: Yes (Hospitalization)
  Sender: FDA-Public Use
  Company Number: FR-ROCHE-3324849

PATIENT
  Age: 30 Year
  Sex: Male

DRUGS (2)
  1. BACTRIM [Suspect]
     Active Substance: SULFAMETHOXAZOLE\TRIMETHOPRIM
     Indication: Pneumocystis jirovecii pneumonia
     Dosage: 6 DOSAGE FORM EVERY 1 DAY(S),800/160 MG
     Route: 048
     Dates: start: 20230305, end: 20230315
  2. VALGANCICLOVIR HYDROCHLORIDE [Suspect]
     Active Substance: VALGANCICLOVIR HYDROCHLORIDE
     Indication: Pneumonia cytomegaloviral
     Dosage: 1800 MILLIGRAM EVERY 1?DAY(S
     Route: 048
     Dates: start: 20230309, end: 20230315

REACTIONS (3)
  - Hepatic cytolysis [Recovered/Resolved]
  - Vomiting [Recovered/Resolved]
  - Rash [Recovered/Resolved]

NARRATIVE: CASE EVENT DATE: 20230315
